FAERS Safety Report 25703982 (Version 1)
Quarter: 2025Q3

REPORT INFORMATION
  Report Type: Spontaneous
  Country: CN (occurrence: CN)
  Receive Date: 20250820
  Receipt Date: 20250820
  Transmission Date: 20251020
  Serious: Yes (Other)
  Sender: NOVARTIS
  Company Number: CN-002147023-NVSC2025CN128861

PATIENT
  Age: 84 Year
  Sex: Male

DRUGS (10)
  1. ELTROMBOPAG [Suspect]
     Active Substance: ELTROMBOPAG
     Indication: Chronic myelomonocytic leukaemia
     Route: 065
  2. ELTROMBOPAG [Suspect]
     Active Substance: ELTROMBOPAG
     Indication: Immune thrombocytopenia
     Dosage: 75 MG, QD
     Route: 065
     Dates: start: 201911
  3. CYCLOSPORINE [Suspect]
     Active Substance: CYCLOSPORINE
     Indication: Chronic myelomonocytic leukaemia
     Route: 065
  4. CYCLOSPORINE [Suspect]
     Active Substance: CYCLOSPORINE
     Indication: Immune thrombocytopenia
  5. HUMAN IMMUNOGLOBULIN G [Suspect]
     Active Substance: HUMAN IMMUNOGLOBULIN G
     Indication: Chronic myelomonocytic leukaemia
     Route: 065
  6. HUMAN IMMUNOGLOBULIN G [Suspect]
     Active Substance: HUMAN IMMUNOGLOBULIN G
     Indication: Immune thrombocytopenia
  7. RITUXIMAB [Suspect]
     Active Substance: RITUXIMAB
     Indication: Chronic myelomonocytic leukaemia
     Route: 065
  8. RITUXIMAB [Suspect]
     Active Substance: RITUXIMAB
     Indication: Immune thrombocytopenia
  9. DANAZOL [Suspect]
     Active Substance: DANAZOL
     Indication: Chronic myelomonocytic leukaemia
     Dosage: 0.2 G, TID
     Route: 065
     Dates: start: 201911
  10. DANAZOL [Suspect]
     Active Substance: DANAZOL
     Indication: Immune thrombocytopenia

REACTIONS (4)
  - Chronic myelomonocytic leukaemia [Unknown]
  - Malignant neoplasm progression [Unknown]
  - Drug ineffective [Recovering/Resolving]
  - Drug ineffective for unapproved indication [Unknown]
